FAERS Safety Report 5373148-5 (Version None)
Quarter: 2007Q2

REPORT INFORMATION
  Report Type: 
  Country: None (occurrence: None)
  Receive Date: 20070626
  Receipt Date: 20070620
  Transmission Date: 20071010
  Serious: Yes (Death, Hospitalization)
  Sender: FDA-Public Use
  Company Number: 163-21880-07061122

PATIENT
  Age: 87 Year
  Sex: Female

DRUGS (4)
  1. REVLIMID [Suspect]
     Indication: MULTIPLE MYELOMA
     Dosage: 5 MG, 1 IN 1 D, ORAL
     Route: 047
     Dates: start: 20070123, end: 20070501
  2. FOSINOPRIL SODIUM [Concomitant]
  3. DIGOXIN [Concomitant]
  4. PANTOPRAZOLE SODIUM [Concomitant]

REACTIONS (1)
  - CARDIAC DISORDER [None]
